FAERS Safety Report 7352185-5 (Version None)
Quarter: 2011Q1

REPORT INFORMATION
  Report Type: 
  Country: None (occurrence: None)
  Receive Date: 20110304
  Receipt Date: 20110222
  Transmission Date: 20110831
  Serious: Yes (Other)
  Sender: FDA-Public Use
  Company Number: 2010EU004371

PATIENT
  Age: 56 Year
  Sex: Female
  Weight: 63 kg

DRUGS (3)
  1. VESIKUR (SOLIFENACIN) TABLET, 10MG [Suspect]
     Indication: HYPERTONIC BLADDER
     Dosage: 10 MG, UID/QD
     Dates: start: 20100812
  2. VESIKUR (SOLIFENACIN) TABLET,5MG [Suspect]
     Indication: HYPERTONIC BLADDER
     Dosage: 5 MG, UID/QD
     Dates: start: 20100601
  3. AZILECT [Concomitant]

REACTIONS (4)
  - VERTIGO [None]
  - CONSTIPATION [None]
  - UNEVALUABLE EVENT [None]
  - VISION BLURRED [None]
